FAERS Safety Report 9942002 (Version 1)
Quarter: 2014Q1

REPORT INFORMATION
  Report Type: Report from Study
  Country: US (occurrence: US)
  Receive Date: 20140303
  Receipt Date: 20140303
  Transmission Date: 20141002
  Serious: No
  Sender: FDA-Public Use
  Company Number: US-ABBVIE-13P-163-1039405-00

PATIENT
  Age: 45 Year
  Sex: Female

DRUGS (6)
  1. HUMIRA [Suspect]
     Indication: PSORIATIC ARTHROPATHY
     Dosage: INITIAL INJECTION
     Dates: start: 20130108
  2. PROZAC [Concomitant]
     Indication: DEPRESSION
  3. ZYRTEC [Concomitant]
     Indication: HOUSE DUST ALLERGY
  4. ZYRTEC [Concomitant]
     Indication: ALLERGY TO ANIMAL
  5. TOVIAZ [Concomitant]
     Indication: HYPERTONIC BLADDER
  6. VIMOVO [Concomitant]
     Indication: ANTIINFLAMMATORY THERAPY
     Dosage: 1 TAB UP TO TWICE DAILY

REACTIONS (2)
  - Nausea [Not Recovered/Not Resolved]
  - Diarrhoea [Not Recovered/Not Resolved]
